FAERS Safety Report 23864683 (Version 1)
Quarter: 2024Q2

REPORT INFORMATION
  Report Type: Spontaneous
  Country: US (occurrence: US)
  Receive Date: 20240516
  Receipt Date: 20240516
  Transmission Date: 20240715
  Serious: No
  Sender: FDA-Public Use
  Company Number: US-SA-SAC20240513001268

PATIENT
  Age: 46 Year
  Sex: Female

DRUGS (2)
  1. DUPIXENT [Suspect]
     Active Substance: DUPILUMAB
     Indication: Neurodermatitis
     Dosage: 300 MG, QOW
     Route: 058
     Dates: start: 202310
  2. ZOFRAN [Concomitant]
     Active Substance: ONDANSETRON HYDROCHLORIDE

REACTIONS (9)
  - Pyrexia [Unknown]
  - Chills [Unknown]
  - Abdominal pain [Unknown]
  - Nausea [Unknown]
  - Back pain [Unknown]
  - Bite [Unknown]
  - Skin induration [Unknown]
  - Illness [Unknown]
  - Therapeutic response decreased [Unknown]
